FAERS Safety Report 12633401 (Version 2)
Quarter: 2016Q3

REPORT INFORMATION
  Report Type: Spontaneous
  Country: US (occurrence: US)
  Receive Date: 20160808
  Receipt Date: 20160808
  Transmission Date: 20161109
  Serious: No
  Sender: FDA-Public Use
  Company Number: US-BEH-2016060710

PATIENT
  Age: 71 Year
  Sex: Female
  Weight: 46 kg

DRUGS (17)
  1. HIZENTRA [Suspect]
     Active Substance: HUMAN IMMUNOGLOBULIN G
     Indication: HUMORAL IMMUNE DEFECT
     Route: 058
  2. TEVETEN [Concomitant]
     Active Substance: EPROSARTAN MESYLATE
  3. FIORICET [Concomitant]
     Active Substance: ACETAMINOPHEN\BUTALBITAL\CAFFEINE
  4. AMBIEN [Concomitant]
     Active Substance: ZOLPIDEM TARTRATE
  5. DEMADEX [Concomitant]
     Active Substance: TORSEMIDE
  6. HIZENTRA [Suspect]
     Active Substance: HUMAN IMMUNOGLOBULIN G
     Indication: CONGENITAL HYPOGAMMAGLOBULINAEMIA
  7. EPIPEN [Concomitant]
     Active Substance: EPINEPHRINE
  8. PREDNISONE. [Concomitant]
     Active Substance: PREDNISONE
  9. HIZENTRA [Suspect]
     Active Substance: HUMAN IMMUNOGLOBULIN G
  10. ZOMIG [Concomitant]
     Active Substance: ZOLMITRIPTAN
  11. DIPHENHYDRAMINE. [Concomitant]
     Active Substance: DIPHENHYDRAMINE
  12. TEKTURNA [Concomitant]
     Active Substance: ALISKIREN HEMIFUMARATE
  13. L-M-X [Concomitant]
  14. ALTACE [Concomitant]
     Active Substance: RAMIPRIL
  15. ACETAMINOPHEN. [Concomitant]
     Active Substance: ACETAMINOPHEN
  16. INSPRA [Concomitant]
     Active Substance: EPLERENONE
  17. NADOLOL. [Concomitant]
     Active Substance: NADOLOL

REACTIONS (2)
  - Cystitis [Unknown]
  - Vasculitis [Unknown]

NARRATIVE: CASE EVENT DATE: 201512
